FAERS Safety Report 4578505-2 (Version None)
Quarter: 2005Q1

REPORT INFORMATION
  Report Type: 
  Country: None (occurrence: None)
  Receive Date: 20050204
  Receipt Date: 20050204
  Transmission Date: 20050727
  Serious: Yes (Other)
  Sender: FDA-Public Use
  Company Number: None

PATIENT
  Age: 28 Year
  Sex: Female
  Weight: 70.7611 kg

DRUGS (5)
  1. LEVAQUIN [Suspect]
     Indication: PNEUMONIA
     Dosage: 1   PER DAY   ORAL
     Route: 048
     Dates: start: 20041021, end: 20041031
  2. LEVAQUIN [Suspect]
     Indication: SINUSITIS
     Dosage: 1   PER DAY    ORAL
     Route: 048
     Dates: start: 20050118, end: 20050126
  3. FLONASE [Concomitant]
  4. CLARINEX [Concomitant]
  5. ADVIL [Concomitant]

REACTIONS (6)
  - ANXIETY [None]
  - DEPERSONALISATION [None]
  - DYSPNOEA [None]
  - INSOMNIA [None]
  - PANIC REACTION [None]
  - SUFFOCATION FEELING [None]
